FAERS Safety Report 5056910-8 (Version None)
Quarter: 2006Q2

REPORT INFORMATION
  Report Type: 
  Country: None (occurrence: None)
  Receive Date: 20060620
  Receipt Date: 20050307
  Transmission Date: 20061013
  Serious: Yes (Hospitalization)
  Sender: FDA-Public Use
  Company Number: MK200503-0094-1

PATIENT
  Age: 69 Year
  Sex: Female

DRUGS (1)
  1. OPTIRAY 350 [Suspect]
     Indication: COMPUTERISED TOMOGRAM ABDOMEN
     Dosage: 125 ML,ONE TIME, IV
     Route: 042
     Dates: start: 20050210, end: 20050210

REACTIONS (1)
  - CHEST PAIN [None]
